FAERS Safety Report 15777992 (Version 1)
Quarter: 2018Q4

REPORT INFORMATION
  Report Type: Spontaneous
  Country: US (occurrence: US)
  Receive Date: 20181231
  Receipt Date: 20181231
  Transmission Date: 20190205
  Serious: Yes (Hospitalization)
  Sender: FDA-Public Use
  Company Number: US-PFIZER INC-2018531908

PATIENT
  Age: 67 Year
  Sex: Female
  Weight: 65.77 kg

DRUGS (5)
  1. PRISTIQ EXTENDED-RELEASE [Suspect]
     Active Substance: DESVENLAFAXINE SUCCINATE
     Indication: DEPRESSION
     Dosage: 100 MG, 1X/DAY
     Route: 048
     Dates: start: 2014
  2. PROBIOTIC [BIFIDOBACTERIUM LACTIS] [Concomitant]
     Dosage: UNK
  3. CRESTOR [Concomitant]
     Active Substance: ROSUVASTATIN CALCIUM
     Indication: BLOOD CHOLESTEROL ABNORMAL
     Dosage: 20 MG, 1X/DAY
     Route: 048
     Dates: start: 201809
  4. VITAMIN D [Concomitant]
     Active Substance: CHOLECALCIFEROL
     Dosage: UNK
     Dates: start: 201711
  5. VITAMIN B12 [Concomitant]
     Active Substance: CYANOCOBALAMIN
     Dosage: UNK
     Dates: start: 201711

REACTIONS (11)
  - Headache [Recovered/Resolved]
  - Dyspnoea [Recovered/Resolved]
  - Irritability [Unknown]
  - Crying [Unknown]
  - Abdominal distension [Unknown]
  - Gastroenteritis [Unknown]
  - Feeling abnormal [Recovered/Resolved]
  - Product dose omission [Recovered/Resolved]
  - Diverticulum [Unknown]
  - Diarrhoea [Unknown]
  - Abdominal pain upper [Unknown]

NARRATIVE: CASE EVENT DATE: 201711
